FAERS Safety Report 8589460-2 (Version None)
Quarter: 2012Q3

REPORT INFORMATION
  Report Type: 
  Country: None (occurrence: None)
  Receive Date: 20120813
  Receipt Date: 20120801
  Transmission Date: 20120928
  Serious: Yes (Other)
  Sender: FDA-Public Use
  Company Number: NL-CELGENEUS-114-21880-11102217

PATIENT
  Sex: Male
  Weight: 83 kg

DRUGS (7)
  1. MELPHALAN HYDROCHLORIDE [Suspect]
     Indication: MULTIPLE MYELOMA
     Route: 048
     Dates: start: 20111003
  2. REVLIMID [Suspect]
     Dosage: 10 MILLIGRAM
     Route: 048
     Dates: start: 20110410
  3. CIPROFLOXACIN HCL [Concomitant]
  4. REVLIMID [Suspect]
     Indication: MULTIPLE MYELOMA
     Dosage: 10 MILLIGRAM
     Route: 048
     Dates: start: 20111003, end: 20111013
  5. REVLIMID [Suspect]
     Route: 048
     Dates: start: 20111018
  6. PREDNISONE TAB [Suspect]
     Indication: MULTIPLE MYELOMA
     Route: 048
     Dates: start: 20111003
  7. CIPROFLOXACIN HCL [Concomitant]
     Indication: MALAISE
     Route: 048
     Dates: start: 20110823, end: 20110928

REACTIONS (2)
  - ORAL INFECTION [None]
  - ORTHOSTATIC HYPOTENSION [None]
